FAERS Safety Report 25263907 (Version 1)
Quarter: 2025Q2

REPORT INFORMATION
  Report Type: Spontaneous
  Country: US (occurrence: None)
  Receive Date: 20250501
  Receipt Date: 20250501
  Transmission Date: 20250717
  Serious: Yes (Other)
  Sender: FDA-CTU
  Company Number: None

PATIENT
  Age: 67 Year
  Sex: Male
  Weight: 90.9 kg

DRUGS (1)
  1. SUTAB [Suspect]
     Active Substance: MAGNESIUM SULFATE\POTASSIUM CHLORIDE\SODIUM SULFATE
     Indication: Bowel preparation
     Dates: start: 20250428, end: 20250429

REACTIONS (8)
  - Feeling cold [None]
  - Nervousness [None]
  - Pyrexia [None]
  - Chills [None]
  - Vomiting [None]
  - Discomfort [None]
  - Tenderness [None]
  - Renal pain [None]

NARRATIVE: CASE EVENT DATE: 20250428
